FAERS Safety Report 18396634 (Version 3)
Quarter: 2021Q2

REPORT INFORMATION
  Report Type: Spontaneous
  Country: US (occurrence: US)
  Receive Date: 20201019
  Receipt Date: 20210601
  Transmission Date: 20210717
  Serious: Yes (Hospitalization)
  Sender: FDA-Public Use
  Company Number: US-GLOBAL BLOOD THERAPEUTICS INC-US-GBT-20-03132

PATIENT
  Age: 61 Year
  Sex: Female

DRUGS (5)
  1. OXBRYTA [Suspect]
     Active Substance: VOXELOTOR
     Route: 048
     Dates: start: 202105
  2. OXBRYTA [Suspect]
     Active Substance: VOXELOTOR
     Indication: SICKLE CELL DISEASE
     Route: 048
     Dates: start: 202008, end: 20200923
  3. OXBRYTA [Suspect]
     Active Substance: VOXELOTOR
     Indication: OSTEOARTHRITIS
     Route: 048
     Dates: start: 20200927
  4. OXBRYTA [Suspect]
     Active Substance: VOXELOTOR
     Indication: ARTHRALGIA
     Route: 048
     Dates: start: 202102
  5. OXBRYTA [Suspect]
     Active Substance: VOXELOTOR
     Indication: HAEMOGLOBIN C DISEASE
     Route: 048
     Dates: start: 20200724, end: 202008

REACTIONS (5)
  - Therapy cessation [Unknown]
  - Knee arthroplasty [Recovered/Resolved]
  - Off label use [Unknown]
  - Product dose omission issue [Unknown]
  - Therapy non-responder [Unknown]

NARRATIVE: CASE EVENT DATE: 202008
